FAERS Safety Report 17612651 (Version 3)
Quarter: 2021Q1

REPORT INFORMATION
  Report Type: Spontaneous
  Country: US (occurrence: US)
  Receive Date: 20200401
  Receipt Date: 20210111
  Transmission Date: 20210419
  Serious: Yes (Hospitalization, Disabling, Other)
  Sender: FDA-Public Use
  Company Number: US-PURDUE PHARMA-USA-2020-0150898

PATIENT
  Sex: Male

DRUGS (4)
  1. LORTAB [Suspect]
     Active Substance: ACETAMINOPHEN\HYDROCODONE BITARTRATE
     Indication: BACK INJURY
     Dosage: 10 MG, UNK
     Route: 065
     Dates: start: 2007, end: 2008
  2. DILAUDID [Suspect]
     Active Substance: HYDROMORPHONE HYDROCHLORIDE
     Indication: PRODUCT USED FOR UNKNOWN INDICATION
     Dosage: UNK
     Route: 048
  3. PERCOCET                           /00446701/ [Suspect]
     Active Substance: ACETAMINOPHEN\OXYCODONE HYDROCHLORIDE\OXYCODONE TEREPHTHALATE
     Indication: BACK INJURY
     Dosage: 10 MG, UNK
     Route: 065
     Dates: start: 2007, end: 2008
  4. OXYCONTIN [Suspect]
     Active Substance: OXYCODONE HYDROCHLORIDE
     Indication: BACK INJURY
     Dosage: UNKNOWN
     Route: 048
     Dates: start: 2007, end: 2008

REACTIONS (9)
  - Drug dependence [Unknown]
  - Craniocerebral injury [Unknown]
  - Withdrawal syndrome [Unknown]
  - Disability [Unknown]
  - Overdose [Unknown]
  - Unevaluable event [Not Recovered/Not Resolved]
  - Gastrointestinal tube insertion [Unknown]
  - Pain [Not Recovered/Not Resolved]
  - Tracheostomy [Unknown]

NARRATIVE: CASE EVENT DATE: 2008
